FAERS Safety Report 18416010 (Version 1)
Quarter: 2020Q4

REPORT INFORMATION
  Report Type: Report from Study
  Country: CA (occurrence: CA)
  Receive Date: 20201022
  Receipt Date: 20201022
  Transmission Date: 20210114
  Serious: Yes (Other)
  Sender: FDA-Public Use
  Company Number: PHHY2019CA028245

PATIENT
  Age: 26 Year
  Sex: Female

DRUGS (1)
  1. GILENYA [Suspect]
     Active Substance: FINGOLIMOD HYDROCHLORIDE
     Indication: RELAPSING-REMITTING MULTIPLE SCLEROSIS
     Dosage: UNK
     Route: 048
     Dates: start: 20190201

REACTIONS (8)
  - Visual impairment [Unknown]
  - Malaise [Recovered/Resolved]
  - Cardiac disorder [Unknown]
  - Fatigue [Unknown]
  - Asthenia [Recovered/Resolved]
  - SARS-CoV-2 test positive [Unknown]
  - Accidental overdose [Unknown]
  - Diplopia [Unknown]

NARRATIVE: CASE EVENT DATE: 20190201
